FAERS Safety Report 11823818 (Version 2)
Quarter: 2015Q4

REPORT INFORMATION
  Report Type: Report from Study
  Country: TR (occurrence: TR)
  Receive Date: 20151210
  Receipt Date: 20151218
  Transmission Date: 20160305
  Serious: Yes (Other)
  Sender: FDA-Public Use
  Company Number: TR-AMGEN-TURCT2015130504

PATIENT
  Age: 72 Year
  Sex: Female
  Weight: 80 kg

DRUGS (12)
  1. VFEND [Concomitant]
     Active Substance: VORICONAZOLE
     Dosage: 320 MG, UNK
     Route: 042
     Dates: start: 20150909, end: 20151001
  2. PAROL [Concomitant]
     Active Substance: ACETAMINOPHEN
     Dosage: 10 MG, UNK
     Route: 042
     Dates: start: 20150908, end: 20150912
  3. MERONEM [Concomitant]
     Active Substance: MEROPENEM
     Dosage: 1 G, UNK
     Route: 042
     Dates: start: 20150908, end: 20151004
  4. RAMIPRIL. [Concomitant]
     Active Substance: RAMIPRIL
     Dosage: UNK, UNK
     Route: 048
     Dates: start: 2015
  5. VANCOMYCIN [Concomitant]
     Active Substance: VANCOMYCIN
     Dosage: 500 MG, UNK
     Route: 042
     Dates: start: 20150909, end: 20151004
  6. SABALAKS [Concomitant]
     Dosage: UNK
     Route: 042
     Dates: start: 20150909, end: 20150912
  7. BLINATUMOMAB [Suspect]
     Active Substance: BLINATUMOMAB
     Indication: ACUTE LYMPHOCYTIC LEUKAEMIA
     Dosage: 28 MUG, UNK
     Route: 041
     Dates: start: 20150908
  8. NOVORAPID [Concomitant]
     Active Substance: INSULIN ASPART
     Dosage: UNK, UNK
     Route: 058
     Dates: start: 20150907, end: 20151007
  9. DEXAMETHASONE. [Concomitant]
     Active Substance: DEXAMETHASONE
     Dosage: 20 MG, UNK
     Dates: start: 20150908
  10. DELOXI [Concomitant]
     Dosage: UNK
     Route: 048
     Dates: start: 2015
  11. CLEXANE [Concomitant]
     Active Substance: ENOXAPARIN SODIUM
     Dosage: UNK, UNK
     Route: 048
     Dates: start: 2015
  12. LANTUS [Concomitant]
     Active Substance: INSULIN GLARGINE
     Dosage: UNK
     Route: 058
     Dates: start: 20150907, end: 20151007

REACTIONS (1)
  - Accidental overdose [Recovered/Resolved]

NARRATIVE: CASE EVENT DATE: 20151121
